FAERS Safety Report 4693144-0 (Version None)
Quarter: 2005Q2

REPORT INFORMATION
  Report Type: 
  Country: None (occurrence: None)
  Receive Date: 20050614
  Receipt Date: 20050530
  Transmission Date: 20051028
  Serious: No
  Sender: FDA-Public Use
  Company Number: SAGL-ZLB/05/54/DEN

PATIENT
  Age: 37 Year
  Sex: Male
  Weight: 90 kg

DRUGS (4)
  1. SANDOGLOBULIN [Suspect]
     Indication: ASTHMA
     Dosage: SEE IMAGE
     Route: 042
     Dates: start: 20050125, end: 20050126
  2. SANDOGLOBULIN [Suspect]
     Indication: ASTHMA
     Dosage: SEE IMAGE
     Route: 042
     Dates: start: 20050223, end: 20050224
  3. SANDOGLOBULIN [Suspect]
     Indication: ASTHMA
     Dosage: SEE IMAGE
     Route: 042
     Dates: start: 20050323, end: 20050324
  4. SANDOGLOBULIN [Suspect]
     Indication: ASTHMA
     Dosage: SEE IMAGE
     Route: 042
     Dates: start: 20050503, end: 20050504

REACTIONS (4)
  - ERYTHEMA [None]
  - OEDEMA PERIPHERAL [None]
  - PHLEBITIS [None]
  - PYREXIA [None]
